FAERS Safety Report 6138410-7 (Version None)
Quarter: 2009Q1

REPORT INFORMATION
  Report Type: 
  Country: None (occurrence: None)
  Receive Date: 20090331
  Receipt Date: 20090320
  Transmission Date: 20090719
  Serious: Yes (Hospitalization)
  Sender: FDA-Public Use
  Company Number: PHHY2009AU07273

PATIENT
  Sex: Male

DRUGS (5)
  1. CLOZARIL [Suspect]
     Indication: SCHIZOPHRENIA
     Dosage: 12.5 MG
     Route: 048
     Dates: start: 20090206
  2. CLOZARIL [Suspect]
     Dosage: 50 MG MANE, 125 MG NOCTE
     Dates: end: 20090221
  3. ESCITALOPRAM [Concomitant]
     Indication: DEPRESSION
     Dosage: 10 MG DAILY
     Route: 048
     Dates: start: 20090220
  4. MULTIVITAMIN ^LAPPE^ [Concomitant]
     Indication: FOLATE DEFICIENCY
     Dosage: 1 DF, ONCE/SINGLE
     Route: 048
     Dates: start: 20090209
  5. RISPERIDONE [Concomitant]
     Indication: SCHIZOPHRENIA
     Dosage: 1 MG, BID
     Route: 048
     Dates: start: 20090203

REACTIONS (14)
  - ASPARTATE AMINOTRANSFERASE INCREASED [None]
  - BLOOD CREATINE PHOSPHOKINASE INCREASED [None]
  - BODY TEMPERATURE INCREASED [None]
  - C-REACTIVE PROTEIN INCREASED [None]
  - CARDIAC DISORDER [None]
  - CATHETERISATION CARDIAC [None]
  - CHEST PAIN [None]
  - CORONARY ARTERY DISEASE [None]
  - MALAISE [None]
  - MYOCARDITIS [None]
  - PHYSICAL EXAMINATION ABNORMAL [None]
  - PSYCHOTIC DISORDER [None]
  - TACHYCARDIA [None]
  - TROPONIN INCREASED [None]
